FAERS Safety Report 9648933 (Version 3)
Quarter: 2014Q1

REPORT INFORMATION
  Report Type: Spontaneous
  Country: BR (occurrence: BR)
  Receive Date: 20131028
  Receipt Date: 20140307
  Transmission Date: 20141002
  Serious: Yes (Hospitalization, Other)
  Sender: FDA-Public Use
  Company Number: BR-SA-2013SA108588

PATIENT
  Age: 66 Year
  Sex: Female

DRUGS (6)
  1. LANTUS [Suspect]
     Indication: PRODUCT USED FOR UNKNOWN INDICATION
     Route: 065
     Dates: start: 2008
  2. GALVUS MET [Concomitant]
  3. METFORMIN HYDROCHLORIDE [Concomitant]
  4. DIOVAN HCT [Concomitant]
  5. ATENOLOL [Concomitant]
     Dosage: 25 MG
  6. METHYLDOPA [Concomitant]
     Dosage: STRENGTH-250 MG

REACTIONS (2)
  - Breast cancer [Recovering/Resolving]
  - Infection [Unknown]
